FAERS Safety Report 9340461 (Version 1)
Quarter: 2013Q2

REPORT INFORMATION
  Report Type: Report from Study
  Country: LT (occurrence: LT)
  Receive Date: 20130610
  Receipt Date: 20130610
  Transmission Date: 20140414
  Serious: Yes (Hospitalization)
  Sender: FDA-Public Use
  Company Number: LT-BRISTOL-MYERS SQUIBB COMPANY-18978197

PATIENT
  Age: 13 Year
  Sex: Female
  Weight: 49 kg

DRUGS (1)
  1. LYSODREN TABS 500 MG [Suspect]
     Indication: ADRENOCORTICAL CARCINOMA
     Dosage: 12MAY2013
     Dates: start: 20130218, end: 20130512

REACTIONS (3)
  - Asthenia [Recovered/Resolved]
  - Dizziness [Recovered/Resolved]
  - Hyperaesthesia [Recovered/Resolved]
